FAERS Safety Report 20007304 (Version 1)
Quarter: 2021Q4

REPORT INFORMATION
  Report Type: Spontaneous
  Country: HR (occurrence: HR)
  Receive Date: 20211029
  Receipt Date: 20211029
  Transmission Date: 20220304
  Serious: Yes (Hospitalization, Other)
  Sender: FDA-Public Use
  Company Number: HR-ABBVIE-21K-216-4135168-00

PATIENT
  Sex: Female

DRUGS (4)
  1. VALPROATE SODIUM [Suspect]
     Active Substance: VALPROATE SODIUM
     Indication: Product used for unknown indication
     Route: 048
     Dates: start: 20190327, end: 20190327
  2. OLANZAPINE [Suspect]
     Active Substance: OLANZAPINE
     Indication: Product used for unknown indication
     Route: 048
     Dates: start: 20190327, end: 20190327
  3. DULOXETINE HYDROCHLORIDE [Suspect]
     Active Substance: DULOXETINE HYDROCHLORIDE
     Indication: Product used for unknown indication
     Route: 048
     Dates: start: 20190327, end: 20190327
  4. ALCOHOL [Suspect]
     Active Substance: ALCOHOL
     Indication: Product used for unknown indication
     Route: 048
     Dates: start: 20190327, end: 20190327

REACTIONS (5)
  - Loss of consciousness [Unknown]
  - Suicide attempt [Unknown]
  - Intentional overdose [Unknown]
  - Coma [Unknown]
  - Somnolence [Unknown]

NARRATIVE: CASE EVENT DATE: 20190327
